FAERS Safety Report 9481843 (Version 1)
Quarter: 2013Q3

REPORT INFORMATION
  Report Type: Spontaneous
  Country: NL (occurrence: NL)
  Receive Date: 20130828
  Receipt Date: 20130828
  Transmission Date: 20140515
  Serious: Yes (Death, Other)
  Sender: FDA-Public Use
  Company Number: NL-AMGEN-NLDSP2013059746

PATIENT
  Sex: Female

DRUGS (2)
  1. PROLIA [Suspect]
     Indication: PRODUCT USED FOR UNKNOWN INDICATION
     Dosage: UNK
     Route: 065
  2. NITROFURANTOINE M.C. [Concomitant]
     Indication: URINARY TRACT INFECTION

REACTIONS (3)
  - Cerebral haemorrhage [Fatal]
  - Thrombocytopenia [Fatal]
  - Urinary tract infection [Unknown]
